FAERS Safety Report 25494632 (Version 1)
Quarter: 2025Q2

REPORT INFORMATION
  Report Type: Report from Study
  Country: US (occurrence: US)
  Receive Date: 20250630
  Receipt Date: 20250630
  Transmission Date: 20250717
  Serious: No
  Sender: TRAVERE THERAPEUTICS
  Company Number: US-TRAVERE-2025TVT00832

PATIENT
  Age: 44 Year
  Sex: Male

DRUGS (7)
  1. FILSPARI [Suspect]
     Active Substance: SPARSENTAN
     Indication: IgA nephropathy
     Route: 048
     Dates: start: 20250409
  2. FISH OIL\OMEGA-3 FATTY ACIDS [Concomitant]
     Active Substance: FISH OIL\OMEGA-3 FATTY ACIDS
  3. CALCIUM [Concomitant]
     Active Substance: CALCIUM
  4. SERTRALINE [Concomitant]
     Active Substance: SERTRALINE HYDROCHLORIDE
  5. LAMOTRIGINE EXTENDED RELEASE [Concomitant]
     Active Substance: LAMOTRIGINE
  6. PREDNISONE [Concomitant]
     Active Substance: PREDNISONE
  7. LOSARTAN [Concomitant]
     Active Substance: LOSARTAN

REACTIONS (7)
  - Urine protein/creatinine ratio increased [Unknown]
  - Protein total increased [Unknown]
  - Urinary occult blood positive [Unknown]
  - Red blood cells urine positive [Unknown]
  - Glucose urine present [Unknown]
  - pH urine decreased [Unknown]
  - Off label use [Unknown]

NARRATIVE: CASE EVENT DATE: 20250411
